FAERS Safety Report 12798611 (Version 1)
Quarter: 2016Q3

REPORT INFORMATION
  Report Type: Spontaneous
  Country: US (occurrence: US)
  Receive Date: 20160930
  Receipt Date: 20160930
  Transmission Date: 20161109
  Serious: Yes (Other)
  Sender: FDA-Public Use
  Company Number: US-SA-2016SA175425

PATIENT
  Age: 58 Year
  Sex: Female
  Weight: 85.27 kg

DRUGS (2)
  1. SOLOSTAR [Concomitant]
     Active Substance: DEVICE
     Indication: DIABETES MELLITUS
     Dates: start: 2013
  2. LANTUS SOLOSTAR [Suspect]
     Active Substance: INSULIN GLARGINE
     Indication: DIABETES MELLITUS
     Dosage: DOSE:40 UNIT(S)
     Route: 065
     Dates: start: 2013

REACTIONS (5)
  - Weight increased [Unknown]
  - Movement disorder [Unknown]
  - Visual impairment [Unknown]
  - Peripheral arterial occlusive disease [Unknown]
  - Blood pressure increased [Unknown]
